FAERS Safety Report 8512655-0 (Version None)
Quarter: 2012Q3

REPORT INFORMATION
  Report Type: 
  Country: None (occurrence: None)
  Receive Date: 20120716
  Receipt Date: 20120709
  Transmission Date: 20120928
  Serious: Yes (Other)
  Sender: FDA-Public Use
  Company Number: US-PFIZER INC-2012143794

PATIENT
  Sex: Male
  Weight: 81.179 kg

DRUGS (5)
  1. NICOTINE [Suspect]
     Indication: SMOKING CESSATION THERAPY
     Dosage: 14 MG, DAILY
     Dates: start: 20120601, end: 20120601
  2. GEODON [Concomitant]
     Indication: OBSESSIVE-COMPULSIVE DISORDER
     Dosage: 40 MG, 4X/DAY
  3. CHANTIX [Suspect]
     Indication: SMOKING CESSATION THERAPY
     Dosage: UNK
     Dates: start: 20120101, end: 20120101
  4. GEODON [Concomitant]
     Indication: ANXIETY
     Dosage: UNK
     Dates: start: 20040101
  5. NICODERM [Concomitant]
     Indication: SMOKING CESSATION THERAPY
     Dosage: UNK
     Dates: start: 20120101, end: 20120601

REACTIONS (7)
  - DIZZINESS [None]
  - ASTHENIA [None]
  - NAUSEA [None]
  - METAMORPHOPSIA [None]
  - SWEAT GLAND DISORDER [None]
  - PALPITATIONS [None]
  - NASAL DISORDER [None]
